FAERS Safety Report 21258830 (Version 3)
Quarter: 2022Q4

REPORT INFORMATION
  Report Type: Report from Study
  Country: US (occurrence: US)
  Receive Date: 20220826
  Receipt Date: 20221115
  Transmission Date: 20230113
  Serious: Yes (Other)
  Sender: FDA-Public Use
  Company Number: US-TAKEDA-2022TUS058964

PATIENT
  Sex: Female
  Weight: 76 kg

DRUGS (2)
  1. BRIGATINIB [Suspect]
     Active Substance: BRIGATINIB
     Indication: Lung neoplasm malignant
     Dosage: 90 MILLIGRAM, QD
     Route: 048
  2. BRIGATINIB [Suspect]
     Active Substance: BRIGATINIB
     Dosage: 180 MILLIGRAM, QD
     Route: 048
     Dates: start: 20220729

REACTIONS (11)
  - Renal impairment [Unknown]
  - Dehydration [Unknown]
  - Discomfort [Unknown]
  - White coat hypertension [Unknown]
  - Liver disorder [Unknown]
  - Feeling abnormal [Unknown]
  - Fatigue [Unknown]
  - Heart rate decreased [Unknown]
  - Pain [Unknown]
  - Blood potassium decreased [Unknown]
  - Intentional dose omission [Unknown]
